FAERS Safety Report 15582938 (Version 1)
Quarter: 2018Q4

REPORT INFORMATION
  Report Type: Spontaneous
  Country: US (occurrence: US)
  Receive Date: 20181103
  Receipt Date: 20181103
  Transmission Date: 20190205
  Serious: No
  Sender: FDA-Public Use
  Company Number: US-TEVA-2018-US-970634

PATIENT
  Sex: Female

DRUGS (12)
  1. AMERGE [Concomitant]
     Active Substance: NARATRIPTAN HYDROCHLORIDE
  2. NORCO [Concomitant]
     Active Substance: ACETAMINOPHEN\HYDROCODONE BITARTRATE
  3. LISINOPRIL. [Concomitant]
     Active Substance: LISINOPRIL
  4. COPAXONE [Suspect]
     Active Substance: GLATIRAMER ACETATE
     Indication: PRODUCT USED FOR UNKNOWN INDICATION
     Dosage: FORM STRENGTH UNKNOWN
     Route: 065
  5. ACTIVELLA [Concomitant]
     Active Substance: ESTRADIOL\NORETHINDRONE ACETATE
  6. CLARITIN [Concomitant]
     Active Substance: LORATADINE
  7. VALIUM [Concomitant]
     Active Substance: DIAZEPAM
  8. MAGNESIUM [Concomitant]
     Active Substance: MAGNESIUM
  9. PROVIGIL [Concomitant]
     Active Substance: MODAFINIL
  10. ZANAFLEX [Concomitant]
     Active Substance: TIZANIDINE HYDROCHLORIDE
  11. TYLENOL [Concomitant]
     Active Substance: ACETAMINOPHEN
  12. NEUROTIN [Concomitant]
     Active Substance: GABAPENTIN

REACTIONS (1)
  - Palpitations [Unknown]
